FAERS Safety Report 6636480-0 (Version None)
Quarter: 2010Q1

REPORT INFORMATION
  Report Type: 
  Country: None (occurrence: None)
  Receive Date: 20100316
  Receipt Date: 20100304
  Transmission Date: 20100710
  Serious: Yes (Hospitalization, Disabling, Other)
  Sender: FDA-Public Use
  Company Number: SE-PFIZER INC-2009312590

PATIENT
  Age: 66 Year
  Sex: Male
  Weight: 90 kg

DRUGS (5)
  1. BLINDED *NO SUBJECT DRUG [Suspect]
     Indication: RESTLESS LEGS SYNDROME
     Dosage: UNK
     Dates: start: 20091204, end: 20091219
  2. BLINDED *PLACEBO [Suspect]
     Indication: RESTLESS LEGS SYNDROME
     Dosage: UNK
     Dates: start: 20091204, end: 20091219
  3. BLINDED *PRAMIPEXOLE 2HCL [Suspect]
     Indication: RESTLESS LEGS SYNDROME
     Dosage: UNK
     Dates: start: 20091204, end: 20091219
  4. BLINDED PRAMIPEXOLE 2HCL [Suspect]
     Dosage: UNK
     Dates: start: 20091204, end: 20091219
  5. BLINDED PREGABALIN [Suspect]
     Indication: RESTLESS LEGS SYNDROME
     Dosage: UNK
     Dates: start: 20091204, end: 20091219

REACTIONS (1)
  - ATRIAL FIBRILLATION [None]
